FAERS Safety Report 10446034 (Version 1)
Quarter: 2014Q3

REPORT INFORMATION
  Report Type: Spontaneous
  Country: JP (occurrence: JP)
  Receive Date: 20140910
  Receipt Date: 20140910
  Transmission Date: 20150326
  Serious: Yes (Hospitalization)
  Sender: FDA-Public Use
  Company Number: JP-BAUSCH-BL-2014-004747

PATIENT
  Age: 85 Year
  Sex: Female
  Weight: 34.05 kg

DRUGS (2)
  1. RFB002 OR RFB002+ VETEPORFIN PHOTODYNAMIC THERAPY (CODE NOT BROKEN) [Suspect]
     Active Substance: RANIBIZUMAB\VERTEPORFIN
     Indication: POLYPOIDAL CHOROIDAL VASCULOPATHY
     Route: 031
     Dates: start: 20140603, end: 20140603
  2. VISUDYNE [Suspect]
     Active Substance: VERTEPORFIN
     Indication: POLYPOIDAL CHOROIDAL VASCULOPATHY
     Route: 031
     Dates: start: 20140605, end: 20140605

REACTIONS (3)
  - Heat exhaustion [Recovering/Resolving]
  - Malaise [None]
  - Decreased appetite [None]

NARRATIVE: CASE EVENT DATE: 20140725
